FAERS Safety Report 5986919-9 (Version None)
Quarter: 2008Q4

REPORT INFORMATION
  Report Type: 
  Country: None (occurrence: None)
  Receive Date: 20081209
  Receipt Date: 20081202
  Transmission Date: 20090506
  Serious: Yes (Other)
  Sender: FDA-Public Use
  Company Number: US-BAYER-200839926NA

PATIENT
  Sex: Female

DRUGS (1)
  1. MAGNEVIST [Suspect]
     Indication: NUCLEAR MAGNETIC RESONANCE IMAGING
     Dates: start: 19960312, end: 19960312

REACTIONS (16)
  - ASTHENIA [None]
  - GAIT DISTURBANCE [None]
  - IMPAIRED HEALING [None]
  - JOINT RANGE OF MOTION DECREASED [None]
  - MOBILITY DECREASED [None]
  - MUSCLE TIGHTNESS [None]
  - MUSCULOSKELETAL STIFFNESS [None]
  - NEPHROGENIC SYSTEMIC FIBROSIS [None]
  - PAIN [None]
  - PRURITUS GENERALISED [None]
  - SCAR [None]
  - SENSORY LOSS [None]
  - SKIN DISCOLOURATION [None]
  - SKIN INDURATION [None]
  - SKIN TIGHTNESS [None]
  - SKIN ULCER [None]
